FAERS Safety Report 5586365-6 (Version None)
Quarter: 2008Q1

REPORT INFORMATION
  Report Type: 
  Country: None (occurrence: None)
  Receive Date: 20080110
  Receipt Date: 20080109
  Transmission Date: 20080703
  Serious: Yes (Hospitalization, Other)
  Sender: FDA-Public Use
  Company Number: PHNU2007DE01388

PATIENT
  Age: 73 Year
  Sex: Female
  Weight: 71 kg

DRUGS (3)
  1. ZOMETA [Suspect]
     Indication: MULTIPLE MYELOMA
     Dosage: 4 MG, QD
     Route: 042
     Dates: start: 20031101, end: 20070101
  2. FENTANYL [Suspect]
     Indication: PAIN
     Dosage: 50 UG/HR, UNK
     Route: 062
     Dates: start: 20040201, end: 20070201
  3. VINCRISTINE + ADRIAMYCIN + DEXAMETHASONE [Suspect]
     Route: 065
     Dates: start: 20050101, end: 20050101

REACTIONS (11)
  - BONE DEVELOPMENT ABNORMAL [None]
  - BREATH ODOUR [None]
  - DENTAL TREATMENT [None]
  - ENDOTRACHEAL INTUBATION [None]
  - OPEN WOUND [None]
  - ORAL SURGERY [None]
  - OSTEONECROSIS [None]
  - PURULENCE [None]
  - SEQUESTRECTOMY [None]
  - TOOTH EXTRACTION [None]
  - WOUND CLOSURE [None]
